FAERS Safety Report 6091334-6 (Version None)
Quarter: 2009Q1

REPORT INFORMATION
  Report Type: 
  Country: None (occurrence: None)
  Receive Date: 20090225
  Receipt Date: 20090214
  Transmission Date: 20090719
  Serious: Yes (Other)
  Sender: FDA-Public Use
  Company Number: US-ROCHE-609351

PATIENT
  Sex: Male

DRUGS (2)
  1. ISOTRETINOIN [Suspect]
     Indication: DRUG USE FOR UNKNOWN INDICATION
     Dosage: THE PATIENT WAS DISPENSED ACCUTANE 40 MG CAPSULE ON 13 JANUARY 2009
     Route: 065
  2. SOTRET [Suspect]
     Indication: DRUG USE FOR UNKNOWN INDICATION
     Dosage: THE PATIENT WAS DISPENSED SOTRET 20 MG CAPSULE ON 15 DECEMBER 2008
     Route: 065

REACTIONS (1)
  - OBSESSIVE-COMPULSIVE DISORDER [None]
